FAERS Safety Report 13075113 (Version 2)
Quarter: 2017Q4

REPORT INFORMATION
  Report Type: Spontaneous
  Country: US (occurrence: US)
  Receive Date: 20161230
  Receipt Date: 20171229
  Transmission Date: 20180320
  Serious: Yes (Life-Threatening, Hospitalization, Other)
  Sender: FDA-Public Use
  Company Number: US-AUROBINDO-AUR-APL-2016-15784

PATIENT
  Age: 63 Year
  Sex: Female

DRUGS (2)
  1. ZOLEDRONIC ACID [Suspect]
     Active Substance: ZOLEDRONIC ACID
     Indication: OSTEOPOROSIS
     Dosage: ()
     Route: 042
  2. ALENDRONATE SODIUM. [Suspect]
     Active Substance: ALENDRONATE SODIUM
     Indication: OSTEOPOROSIS
     Dosage: UNK
     Route: 065

REACTIONS (9)
  - Urinary tract infection [Unknown]
  - Respiratory distress [Recovered/Resolved]
  - Multiple organ dysfunction syndrome [Recovered/Resolved]
  - Hypotension [Recovered/Resolved]
  - Mental disorder [Unknown]
  - Stress cardiomyopathy [Recovered/Resolved]
  - Acute kidney injury [Recovered/Resolved]
  - Pulmonary oedema [Recovered/Resolved]
  - Acute phase reaction [Recovered/Resolved]
